FAERS Safety Report 21028816 (Version 7)
Quarter: 2022Q3

REPORT INFORMATION
  Report Type: Report from Study
  Country: ES (occurrence: None)
  Receive Date: 20220630
  Receipt Date: 20220807
  Transmission Date: 20221026
  Serious: Yes (Hospitalization)
  Sender: FDA-Public Use
  Company Number: ES-ROCHE-3122592

PATIENT
  Age: 81 Year
  Sex: Female
  Weight: 66.1 kg

DRUGS (61)
  1. MOSUNETUZUMAB [Suspect]
     Active Substance: MOSUNETUZUMAB
     Indication: Diffuse large B-cell lymphoma
     Dosage: ON 14/JUN/2022 AND 21/JUN/2022, SHE RECEIVED MOST RECENT DOSE 45 MG OF STUDY DRUG MOSUNETUZUMAB PRIO
     Route: 058
     Dates: start: 20220607
  2. POLATUZUMAB VEDOTIN [Suspect]
     Active Substance: POLATUZUMAB VEDOTIN
     Indication: Diffuse large B-cell lymphoma
     Dosage: ON 07/JUN/2022, SHE RECEIVED MOST RECENT DOSE 117.54 MG OF STUDY DRUG PRIOR TO SAE/AE.
     Route: 042
     Dates: start: 20220607
  3. DEXTROSE\SODIUM CHLORIDE [Concomitant]
     Active Substance: DEXTROSE\SODIUM CHLORIDE
     Route: 042
     Dates: start: 20220602, end: 20220615
  4. DEXTROSE\SODIUM CHLORIDE [Concomitant]
     Active Substance: DEXTROSE\SODIUM CHLORIDE
     Route: 042
     Dates: start: 20220617, end: 20220622
  5. SODIUM BICARBONATE [Concomitant]
     Active Substance: SODIUM BICARBONATE
     Dosage: 3 U
     Route: 042
     Dates: start: 20220602, end: 20220605
  6. SODIUM BICARBONATE [Concomitant]
     Active Substance: SODIUM BICARBONATE
     Dosage: 1 AMPULE
     Route: 042
     Dates: start: 20220617, end: 20220629
  7. RASBURICASE [Concomitant]
     Active Substance: RASBURICASE
     Route: 048
     Dates: start: 20220602, end: 20220607
  8. DEXAMETHASONE [Concomitant]
     Active Substance: DEXAMETHASONE
     Route: 042
     Dates: start: 20220602, end: 20220606
  9. DEXAMETHASONE [Concomitant]
     Active Substance: DEXAMETHASONE
     Route: 042
     Dates: start: 20220607, end: 20220607
  10. DEXAMETHASONE [Concomitant]
     Active Substance: DEXAMETHASONE
     Route: 042
     Dates: start: 20220610, end: 20220613
  11. TRAZODONE [Concomitant]
     Active Substance: TRAZODONE HYDROCHLORIDE
     Route: 042
     Dates: start: 202101, end: 20220623
  12. SPIRONOLACTONE [Concomitant]
     Active Substance: SPIRONOLACTONE
     Route: 048
     Dates: start: 202101, end: 20220615
  13. FUROSEMIDE [Concomitant]
     Active Substance: FUROSEMIDE
     Route: 048
     Dates: start: 20220602, end: 20220622
  14. FUROSEMIDE [Concomitant]
     Active Substance: FUROSEMIDE
     Dosage: 2 AMPULE
     Route: 042
     Dates: start: 20220621, end: 20220704
  15. BISOPROLOL [Concomitant]
     Active Substance: BISOPROLOL
     Route: 048
     Dates: start: 20220602, end: 20220704
  16. VENLAFAXINE [Concomitant]
     Active Substance: VENLAFAXINE HYDROCHLORIDE
     Route: 048
     Dates: start: 20220602, end: 20220622
  17. OMEPRAZOLE [Concomitant]
     Active Substance: OMEPRAZOLE
     Route: 048
     Dates: start: 20220602, end: 20220610
  18. ALPRAZOLAM [Concomitant]
     Active Substance: ALPRAZOLAM
     Route: 048
     Dates: start: 20220602, end: 20220611
  19. ENOXAPARIN [Concomitant]
     Active Substance: ENOXAPARIN
     Route: 058
     Dates: start: 20220602, end: 20220628
  20. NYSTATIN [Concomitant]
     Active Substance: NYSTATIN
     Dosage: 1 OTHER
     Route: 048
     Dates: start: 20220604, end: 20220704
  21. DEXCHLORPHENIRAMINE [Concomitant]
     Active Substance: DEXCHLORPHENIRAMINE
     Dosage: 1 AMPULE
     Route: 042
     Dates: start: 20220607, end: 20220607
  22. SULFAMETHOXAZOLE\TRIMETHOPRIM [Concomitant]
     Active Substance: SULFAMETHOXAZOLE\TRIMETHOPRIM
     Route: 048
     Dates: start: 20220606, end: 20220704
  23. ACYCLOVIR [Concomitant]
     Active Substance: ACYCLOVIR
     Route: 048
     Dates: start: 20220606, end: 20220619
  24. POSACONAZOLE [Concomitant]
     Active Substance: POSACONAZOLE
     Route: 048
     Dates: start: 20220606, end: 20220614
  25. ACETAMINOPHEN [Concomitant]
     Active Substance: ACETAMINOPHEN
     Route: 042
     Dates: start: 20220607, end: 20220607
  26. ACETAMINOPHEN [Concomitant]
     Active Substance: ACETAMINOPHEN
     Route: 042
     Dates: start: 20220617
  27. LAMIVUDINE [Concomitant]
     Active Substance: LAMIVUDINE
     Route: 048
     Dates: start: 20220607, end: 20220704
  28. ALLOPURINOL [Concomitant]
     Active Substance: ALLOPURINOL
     Route: 048
     Dates: start: 20220608, end: 20220622
  29. LACTULOSE [Concomitant]
     Active Substance: LACTULOSE
     Route: 047
     Dates: start: 20220609, end: 20220610
  30. LACTULOSE [Concomitant]
     Active Substance: LACTULOSE
     Route: 048
     Dates: start: 20220612, end: 20220615
  31. PANTOPRAZOLE SODIUM [Concomitant]
     Active Substance: PANTOPRAZOLE SODIUM
     Route: 042
     Dates: start: 20220611, end: 20220615
  32. PANTOPRAZOLE SODIUM [Concomitant]
     Active Substance: PANTOPRAZOLE SODIUM
     Route: 048
     Dates: start: 20220615, end: 20220617
  33. PANTOPRAZOLE SODIUM [Concomitant]
     Active Substance: PANTOPRAZOLE SODIUM
     Route: 042
     Dates: start: 20220612, end: 20220704
  34. QUETIAPINE [Concomitant]
     Active Substance: QUETIAPINE
     Route: 048
     Dates: start: 20220614, end: 20220627
  35. FILGRASTIM [Concomitant]
     Active Substance: FILGRASTIM
     Route: 058
     Dates: start: 20220615, end: 20220617
  36. FILGRASTIM [Concomitant]
     Active Substance: FILGRASTIM
     Route: 058
     Dates: start: 20220618, end: 20220623
  37. FILGRASTIM [Concomitant]
     Active Substance: FILGRASTIM
     Route: 058
     Dates: start: 20220625, end: 20220704
  38. SODIUM CHLORIDE [Concomitant]
     Active Substance: SODIUM CHLORIDE
     Route: 042
     Dates: start: 20220617, end: 20220617
  39. SODIUM CHLORIDE [Concomitant]
     Active Substance: SODIUM CHLORIDE
     Route: 042
     Dates: start: 20220623, end: 20220624
  40. SODIUM CHLORIDE [Concomitant]
     Active Substance: SODIUM CHLORIDE
     Route: 042
     Dates: start: 20220629, end: 20220702
  41. OXYGEN [Concomitant]
     Active Substance: OXYGEN
     Route: 045
     Dates: start: 20220617
  42. CHLORHEXIDINE [Concomitant]
     Active Substance: CHLORHEXIDINE
     Dosage: 1 OTHER
     Route: 061
     Dates: start: 20220617
  43. KABIVEN [Concomitant]
     Active Substance: AMINO ACIDS\ANHYDROUS DEXTROSE\CALCIUM CHLORIDE\MAGNESIUM SULFATE HEPTAHYDRATE\POTASSIUM CHLORIDE\SO
     Route: 042
     Dates: start: 20220617, end: 20220628
  44. AZTREONAM [Concomitant]
     Active Substance: AZTREONAM
     Route: 042
     Dates: start: 20220617, end: 20220624
  45. GANCICLOVIR [Concomitant]
     Active Substance: GANCICLOVIR
     Route: 042
     Dates: start: 20220617, end: 20220629
  46. ALBUMIN HUMAN [Concomitant]
     Active Substance: ALBUMIN HUMAN
     Dosage: 1 AMPULE
     Route: 042
     Dates: start: 20220622, end: 20220704
  47. ALDACTONE [Concomitant]
     Active Substance: SPIRONOLACTONE
     Route: 048
     Dates: start: 20220617, end: 20220704
  48. POTASSIUM CHLORIDE [Concomitant]
     Active Substance: POTASSIUM CHLORIDE
     Dosage: 40 OTHER
     Route: 042
     Dates: start: 20220619, end: 20220629
  49. SERTRALINE [Concomitant]
     Active Substance: SERTRALINE HYDROCHLORIDE
     Route: 048
     Dates: start: 20220624, end: 20220628
  50. MEROPENEM [Concomitant]
     Active Substance: MEROPENEM
     Route: 042
     Dates: start: 20220625, end: 20220704
  51. TARGOCID [Concomitant]
     Active Substance: TEICOPLANIN
     Route: 042
     Dates: start: 20220625, end: 20220704
  52. TIAPRIDE HYDROCHLORIDE [Concomitant]
     Active Substance: TIAPRIDE HYDROCHLORIDE
     Route: 042
     Dates: start: 20220623, end: 20220624
  53. DOBUTAMINE [Concomitant]
     Active Substance: DOBUTAMINE HYDROCHLORIDE
     Dosage: 4 AMPULE
     Route: 042
     Dates: start: 20220703, end: 20220703
  54. MORPHINE [Concomitant]
     Active Substance: MORPHINE
     Route: 042
     Dates: start: 20220704, end: 20220704
  55. BUTYLSCOPOLAMINE [Concomitant]
     Active Substance: BUTYLSCOPOLAMINE
     Dosage: 2 AMPULE
     Route: 042
     Dates: start: 20220704, end: 20220704
  56. HUMAN RED BLOOD CELL [Concomitant]
     Active Substance: HUMAN RED BLOOD CELL
     Dosage: 1 OTHER
     Route: 042
     Dates: start: 20220620, end: 20220620
  57. HUMAN RED BLOOD CELL [Concomitant]
     Active Substance: HUMAN RED BLOOD CELL
     Dosage: 2 OTHER
     Route: 042
     Dates: start: 20220625, end: 20220625
  58. HUMAN RED BLOOD CELL [Concomitant]
     Active Substance: HUMAN RED BLOOD CELL
     Dosage: 2 OTHER
     Route: 042
     Dates: start: 20220629, end: 20220629
  59. PLATELETS [Concomitant]
     Active Substance: HUMAN PLATELET, ALLOGENIC
     Dosage: 1 OTHER
     Route: 042
     Dates: start: 20220701, end: 20220701
  60. PLATELETS [Concomitant]
     Active Substance: HUMAN PLATELET, ALLOGENIC
     Dosage: 1 OTHER
     Route: 042
     Dates: start: 20220703, end: 20220703
  61. MAGNESIUM SULFATE [Concomitant]
     Active Substance: MAGNESIUM SULFATE
     Dosage: 1 AMPULE
     Route: 042
     Dates: start: 20220620, end: 20220622

REACTIONS (2)
  - Escherichia urinary tract infection [Recovered/Resolved]
  - Cytomegalovirus infection reactivation [Not Recovered/Not Resolved]

NARRATIVE: CASE EVENT DATE: 20220617
